FAERS Safety Report 10016751 (Version 1)
Quarter: 2014Q1

REPORT INFORMATION
  Report Type: Spontaneous
  Country: US (occurrence: US)
  Receive Date: 20140318
  Receipt Date: 20140318
  Transmission Date: 20141002
  Serious: Yes (Other)
  Sender: FDA-Public Use
  Company Number: PHHY2014US028146

PATIENT
  Age: 60 Year
  Sex: Male

DRUGS (3)
  1. HALOPERIDOL INJECTION USP [Suspect]
     Indication: AGGRESSION
     Dosage: 5 MG, UNK
  2. LORAZEPAM [Interacting]
     Indication: AGGRESSION
     Dosage: 2 MG, UNK
  3. KAVA [Interacting]
     Indication: PHYTOTHERAPY

REACTIONS (3)
  - Hypoxia [Unknown]
  - Atrial flutter [Unknown]
  - Drug interaction [Unknown]
